FAERS Safety Report 6700198-6 (Version None)
Quarter: 2010Q2

REPORT INFORMATION
  Report Type: 
  Country: None (occurrence: None)
  Receive Date: 20100428
  Receipt Date: 20100419
  Transmission Date: 20101027
  Serious: Yes (Other)
  Sender: FDA-Public Use
  Company Number: FR-PFIZER INC-2010048887

PATIENT
  Age: 74 Year
  Sex: Female

DRUGS (4)
  1. TAHOR [Suspect]
  2. ODRIK [Concomitant]
  3. CARDENSIEL [Concomitant]
  4. KARDEGIC [Concomitant]

REACTIONS (1)
  - VERTIGO [None]
